FAERS Safety Report 5038210-5 (Version None)
Quarter: 2006Q2

REPORT INFORMATION
  Report Type: 
  Country: None (occurrence: None)
  Receive Date: 20060626
  Receipt Date: 20060614
  Transmission Date: 20061013
  Serious: Yes (Other)
  Sender: FDA-Public Use
  Company Number: 2006-01065

PATIENT
  Age: 68 Year
  Sex: Female
  Weight: 56.7 kg

DRUGS (7)
  1. VELCADE [Suspect]
     Indication: MULTIPLE MYELOMA
     Dosage: 1.30 MG/M2, IV BOLUS
     Route: 040
     Dates: start: 20060225, end: 20060504
  2. VELCADE [Suspect]
  3. VELCADE [Suspect]
  4. DEXAMETHASONE [Suspect]
     Indication: MULTIPLE MYELOMA
     Dosage: 40.00 MG,
     Dates: start: 20060225, end: 20060401
  5. MELPHALAN (MELPHALAN) [Suspect]
     Indication: MULTIPLE MYELOMA
  6. AREDIA [Concomitant]
  7. DARBEPOETIN ALFA (DARBEPOETIN ALFA) [Concomitant]

REACTIONS (6)
  - ASTHENIA [None]
  - DISCOMFORT [None]
  - MACULAR DEGENERATION [None]
  - NERVOUS SYSTEM DISORDER [None]
  - THROMBOCYTOPENIA [None]
  - VISION BLURRED [None]
